FAERS Safety Report 20041557 (Version 3)
Quarter: 2021Q4

REPORT INFORMATION
  Report Type: Spontaneous
  Country: US (occurrence: US)
  Receive Date: 20211108
  Receipt Date: 20211216
  Transmission Date: 20220304
  Serious: No
  Sender: FDA-Public Use
  Company Number: US-TOLMAR, INC.-21US031116

PATIENT
  Age: 10 Year
  Sex: Female

DRUGS (2)
  1. FENSOLVI [Suspect]
     Active Substance: LEUPROLIDE ACETATE
     Indication: Precocious puberty
     Dosage: 45 MILLIGRAM, Q 6 MONTH
     Route: 058
     Dates: start: 20210823
  2. LUPRON [Concomitant]
     Active Substance: LEUPROLIDE ACETATE
     Indication: Precocious puberty
     Dosage: 15 MILLIGRAM

REACTIONS (2)
  - Injection site reaction [Unknown]
  - Product administration error [Unknown]

NARRATIVE: CASE EVENT DATE: 20210823
